FAERS Safety Report 7250200-0 (Version None)
Quarter: 2011Q1

REPORT INFORMATION
  Report Type: 
  Country: None (occurrence: None)
  Receive Date: 20110128
  Receipt Date: 20101223
  Transmission Date: 20110831
  Serious: Yes (Hospitalization, Other)
  Sender: FDA-Public Use
  Company Number: US-BAYER-200943523NA

PATIENT
  Sex: Female

DRUGS (5)
  1. YASMIN [Suspect]
     Indication: PRODUCT USED FOR UNKNOWN INDICATION
     Route: 048
     Dates: start: 20040301, end: 20040401
  2. ERY-TAB [Concomitant]
     Dosage: UNK
     Dates: start: 20020101
  3. FLAGYL [Concomitant]
     Dosage: UNK
     Dates: start: 20010101
  4. ALBUTEROL [Concomitant]
     Dosage: UNK
     Dates: start: 20020101
  5. PROPOXYPHENE NAPSYLATE W/ ACETAMINOPHEN [Concomitant]
     Dosage: UNK
     Dates: start: 20020101

REACTIONS (5)
  - DEEP VEIN THROMBOSIS [None]
  - ACUTE MYOCARDIAL INFARCTION [None]
  - CHEST PAIN [None]
  - CEREBROVASCULAR ACCIDENT [None]
  - PULMONARY EMBOLISM [None]
